FAERS Safety Report 5402626-5 (Version None)
Quarter: 2007Q3

REPORT INFORMATION
  Report Type: 
  Country: None (occurrence: None)
  Receive Date: 20070801
  Receipt Date: 20070307
  Transmission Date: 20080115
  Serious: No
  Sender: FDA-Public Use
  Company Number: A0642220A

PATIENT
  Sex: Male

DRUGS (5)
  1. IMITREX [Suspect]
     Indication: MIGRAINE
     Dosage: 100MG AS REQUIRED
     Route: 048
  2. ISOPTIN SR [Concomitant]
  3. MELOXICAM [Concomitant]
  4. AMITRIPTYLINE HCL [Concomitant]
  5. ANTIHISTAMINES [Concomitant]

REACTIONS (1)
  - DRUG ADMINISTRATION ERROR [None]
